FAERS Safety Report 10096050 (Version 1)
Quarter: 2014Q2

REPORT INFORMATION
  Report Type: Spontaneous
  Country: JP (occurrence: JP)
  Receive Date: 20140422
  Receipt Date: 20140422
  Transmission Date: 20141212
  Serious: Yes (Hospitalization)
  Sender: FDA-Public Use
  Company Number: JP-GLAXOSMITHKLINE-B0987246A

PATIENT
  Age: 31 Year
  Sex: Female

DRUGS (7)
  1. LAMICTAL [Suspect]
     Indication: EPILEPSY
     Dosage: 25MG PER DAY
     Route: 048
     Dates: start: 201101
  2. LAMICTAL [Suspect]
     Indication: EPILEPSY
     Route: 048
  3. ALEVIATIN [Concomitant]
     Indication: EPILEPSY
     Route: 065
  4. TEGRETOL [Concomitant]
     Indication: EPILEPSY
     Route: 048
  5. DEPAKENE [Concomitant]
     Indication: EPILEPSY
     Route: 048
  6. TOPIRAMATE [Concomitant]
     Indication: EPILEPSY
     Route: 048
  7. GABAPEN [Concomitant]
     Indication: EPILEPSY
     Route: 048

REACTIONS (12)
  - Drug eruption [Recovering/Resolving]
  - Pyrexia [Recovering/Resolving]
  - Pruritus generalised [Recovering/Resolving]
  - Generalised erythema [Recovering/Resolving]
  - Generalised erythema [Recovering/Resolving]
  - Erythema [Recovering/Resolving]
  - White blood cell count decreased [Recovering/Resolving]
  - Platelet count decreased [Recovering/Resolving]
  - Hepatic function abnormal [Recovering/Resolving]
  - Renal impairment [Recovering/Resolving]
  - Rash erythematous [Recovering/Resolving]
  - Cross sensitivity reaction [Unknown]
